FAERS Safety Report 9309072 (Version 1)
Quarter: 2013Q2

REPORT INFORMATION
  Report Type: Spontaneous
  Country: US (occurrence: US)
  Receive Date: 20130525
  Receipt Date: 20130525
  Transmission Date: 20140414
  Serious: Yes (Other)
  Sender: FDA-Public Use
  Company Number: US-TEVA-406672USA

PATIENT
  Age: 54 Year
  Sex: Female
  Weight: 95.34 kg

DRUGS (4)
  1. ACTIQ [Suspect]
     Indication: BREAKTHROUGH PAIN
     Route: 048
     Dates: end: 20130513
  2. OXYCONTIN [Concomitant]
     Indication: PAIN
  3. ATORVASTATIN [Concomitant]
     Indication: BLOOD CHOLESTEROL
  4. VALIUM [Concomitant]

REACTIONS (4)
  - Drug withdrawal syndrome [Not Recovered/Not Resolved]
  - Tremor [Not Recovered/Not Resolved]
  - Vomiting [Not Recovered/Not Resolved]
  - Feeling of body temperature change [Not Recovered/Not Resolved]
